FAERS Safety Report 14221507 (Version 2)
Quarter: 2017Q4

REPORT INFORMATION
  Report Type: Report from Study
  Country: US (occurrence: US)
  Receive Date: 20171124
  Receipt Date: 20171201
  Transmission Date: 20180321
  Serious: Yes (Other)
  Sender: FDA-Public Use
  Company Number: US-JNJFOC-20160819631

PATIENT
  Age: 57 Year
  Sex: Male

DRUGS (3)
  1. IMBRUVICA [Suspect]
     Active Substance: IBRUTINIB
     Indication: WALDENSTROM^S MACROGLOBULINAEMIA
     Route: 048
  2. IMBRUVICA [Suspect]
     Active Substance: IBRUTINIB
     Indication: WALDENSTROM^S MACROGLOBULINAEMIA
     Route: 048
     Dates: start: 20160622
  3. VALACYCLOVIR [Concomitant]
     Active Substance: VALACYCLOVIR HYDROCHLORIDE

REACTIONS (16)
  - Cellulitis [Not Recovered/Not Resolved]
  - Hypertension [Not Recovered/Not Resolved]
  - Ligament sprain [Not Recovered/Not Resolved]
  - Skin texture abnormal [Unknown]
  - Haemorrhoidal haemorrhage [Not Recovered/Not Resolved]
  - Haemorrhagic diathesis [Not Recovered/Not Resolved]
  - Axillary mass [Not Recovered/Not Resolved]
  - Skin tightness [Unknown]
  - Fluid retention [Unknown]
  - Oedema [Unknown]
  - Contusion [Not Recovered/Not Resolved]
  - Increased tendency to bruise [Unknown]
  - Memory impairment [Not Recovered/Not Resolved]
  - Weight increased [Unknown]
  - Myalgia [Unknown]
  - Arthralgia [Unknown]

NARRATIVE: CASE EVENT DATE: 20160817
